FAERS Safety Report 4467140-2 (Version None)
Quarter: 2004Q4

REPORT INFORMATION
  Report Type: 
  Country: None (occurrence: None)
  Receive Date: 20041004
  Receipt Date: 20041004
  Transmission Date: 20050328
  Serious: No
  Sender: FDA-Public Use
  Company Number: None

PATIENT
  Age: 9 Year
  Sex: Female
  Weight: 23.1334 kg

DRUGS (1)
  1. SUPRAX [Suspect]
     Indication: STREPTOCOCCAL INFECTION

REACTIONS (5)
  - SKIN BLEEDING [None]
  - STEVENS-JOHNSON SYNDROME [None]
  - SWELLING FACE [None]
  - VIRAL INFECTION [None]
  - WEIGHT DECREASED [None]
